FAERS Safety Report 19018251 (Version 1)
Quarter: 2021Q1

REPORT INFORMATION
  Report Type: Report from Study
  Country: US (occurrence: US)
  Receive Date: 20210317
  Receipt Date: 20210317
  Transmission Date: 20210420
  Serious: Yes (Hospitalization)
  Sender: FDA-Public Use
  Company Number: US-PACIRA-2021000220

PATIENT
  Age: 62 Year
  Sex: Male
  Weight: 113 kg

DRUGS (9)
  1. MARCAINE WITH EPINEPHRINE [Suspect]
     Active Substance: BUPIVACAINE HYDROCHLORIDE\EPINEPHRINE BITARTRATE
     Indication: POSTOPERATIVE ANALGESIA
     Dosage: 10 ML MIXED WITH 20 ML EXPAREL AND 1500 ML SALINE/LACTATED RINGER SOLUTION
     Route: 065
     Dates: start: 20190304, end: 20190304
  2. KETAMINE [Concomitant]
     Active Substance: KETAMINE
     Indication: INTRAOPERATIVE CARE
     Dosage: 50/36
     Route: 042
  3. FENTANYL. [Concomitant]
     Active Substance: FENTANYL
     Indication: INTRAOPERATIVE CARE
     Dosage: 0.1 MG
     Route: 042
  4. TYLENOL [Concomitant]
     Active Substance: ACETAMINOPHEN
     Indication: POSTOPERATIVE CARE
     Dosage: 500 MG 1?2 EVERY 6 HOURS AS NEEDED 4000 MG MAXIMUM
     Route: 048
  5. DILAUDID [Concomitant]
     Active Substance: HYDROMORPHONE HYDROCHLORIDE
     Indication: INTRAOPERATIVE CARE
     Dosage: 2 MG
     Route: 042
  6. VISTARIL [Concomitant]
     Active Substance: HYDROXYZINE PAMOATE
     Indication: POSTOPERATIVE ANALGESIA
     Dosage: 25 MG EVERY 4 HOURS AS NEEDED (Q4H PRN) PRESCRIBED AFTER DISCHARGE
     Route: 048
  7. EXPAREL [Suspect]
     Active Substance: BUPIVACAINE
     Indication: POSTOPERATIVE ANALGESIA
     Dosage: 20 ML MIXED WITH 10 ML MARCAINE+EPI AND 1500 ML SALINE/LACTATED RINGER SOLUTION
     Route: 065
     Dates: start: 20190304, end: 20190304
  8. PERCOCET [Concomitant]
     Active Substance: ACETAMINOPHEN\OXYCODONE HYDROCHLORIDE
     Indication: POSTOPERATIVE ANALGESIA
     Dosage: 1?2TABS Q4HR PRESCRIBED AT DISCHARGE
     Route: 048
  9. PERCOCET [Concomitant]
     Active Substance: ACETAMINOPHEN\OXYCODONE HYDROCHLORIDE
     Indication: POSTOPERATIVE ANALGESIA
     Dosage: 8 TABS USED IN PACU
     Route: 048

REACTIONS (1)
  - Arthritis infective [Unknown]
